FAERS Safety Report 7485776-1 (Version None)
Quarter: 2011Q2

REPORT INFORMATION
  Report Type: 
  Country: None (occurrence: None)
  Receive Date: 20110517
  Receipt Date: 20110504
  Transmission Date: 20111010
  Serious: Yes (Disabling, Other)
  Sender: FDA-Public Use
  Company Number: US-MERCK-1001USA03818

PATIENT
  Age: 60 Year
  Sex: Female

DRUGS (2)
  1. FOSAMAX [Suspect]
     Indication: OSTEOARTHRITIS
     Route: 048
     Dates: start: 19990101, end: 20080201
  2. FOSAMAX [Suspect]
     Indication: OSTEOPOROSIS
     Route: 048
     Dates: start: 19990101, end: 20080201

REACTIONS (45)
  - ANXIETY [None]
  - ANXIETY DISORDER [None]
  - CHEST PAIN [None]
  - TOOTH ABSCESS [None]
  - POLLAKIURIA [None]
  - BONE DISORDER [None]
  - ABSCESS ORAL [None]
  - CERVICAL MYELOPATHY [None]
  - OSTEONECROSIS [None]
  - DYSTHYMIC DISORDER [None]
  - PAIN IN EXTREMITY [None]
  - BONE LOSS [None]
  - BRONCHITIS [None]
  - CERVICOBRACHIAL SYNDROME [None]
  - DYSURIA [None]
  - DENTAL CARIES [None]
  - PAIN IN JAW [None]
  - URINARY TRACT INFECTION [None]
  - DYSPEPSIA [None]
  - FISTULA DISCHARGE [None]
  - INTERVERTEBRAL DISC DEGENERATION [None]
  - FIBROMYALGIA [None]
  - HYPERSENSITIVITY [None]
  - EMPHYSEMA [None]
  - SEBORRHOEIC KERATOSIS [None]
  - ATRIAL TACHYCARDIA [None]
  - PANIC DISORDER [None]
  - GASTROOESOPHAGEAL REFLUX DISEASE [None]
  - COLON ADENOMA [None]
  - EDENTULOUS [None]
  - TINNITUS [None]
  - TOOTH DISORDER [None]
  - ORAL DISORDER [None]
  - BACK PAIN [None]
  - FOOT FRACTURE [None]
  - SPINAL OSTEOARTHRITIS [None]
  - OSTEOARTHRITIS [None]
  - HEADACHE [None]
  - DEPRESSION [None]
  - ABDOMINAL PAIN [None]
  - OEDEMA MOUTH [None]
  - SLEEP DISORDER [None]
  - RESTLESS LEGS SYNDROME [None]
  - COUGH [None]
  - CHRONIC OBSTRUCTIVE PULMONARY DISEASE [None]
